FAERS Safety Report 20219262 (Version 6)
Quarter: 2022Q2

REPORT INFORMATION
  Report Type: Report from Study
  Country: NL (occurrence: NL)
  Receive Date: 20211222
  Receipt Date: 20220503
  Transmission Date: 20220721
  Serious: Yes (Death, Other)
  Sender: FDA-Public Use
  Company Number: NL-VER-202100172

PATIENT
  Age: 75 Year
  Sex: Male

DRUGS (1)
  1. TRIPTORELIN PAMOATE [Suspect]
     Active Substance: TRIPTORELIN PAMOATE
     Indication: Prostate cancer
     Dosage: SOLV 2ML (1ST)
     Route: 030
     Dates: start: 20190830

REACTIONS (3)
  - Prostate cancer metastatic [Fatal]
  - Drug ineffective [Unknown]
  - Skin cancer [Not Recovered/Not Resolved]
